FAERS Safety Report 23204616 (Version 2)
Quarter: 2023Q4

REPORT INFORMATION
  Report Type: Report from Study
  Country: US (occurrence: US)
  Receive Date: 20231120
  Receipt Date: 20231129
  Transmission Date: 20240110
  Serious: Yes (Other)
  Sender: FDA-Public Use
  Company Number: US-BAYER-2023A161949

PATIENT
  Age: 47 Year
  Sex: Female
  Weight: 71.202 kg

DRUGS (17)
  1. ADEMPAS [Suspect]
     Active Substance: RIOCIGUAT
     Indication: Pulmonary arterial hypertension
     Dosage: UNK
     Dates: start: 20230420
  2. ADEMPAS [Suspect]
     Active Substance: RIOCIGUAT
     Indication: Pulmonary arterial hypertension
     Dosage: 1.5 MG, TID
     Route: 048
  3. BRIMONIDINE TARTRATE [Concomitant]
     Active Substance: BRIMONIDINE TARTRATE
  4. AMBRISENTAN [Concomitant]
     Active Substance: AMBRISENTAN
  5. SPIRONOLACTONE [Concomitant]
     Active Substance: SPIRONOLACTONE
  6. DORZOLAMIDE HYDROCHLORIDE [Concomitant]
     Active Substance: DORZOLAMIDE HYDROCHLORIDE
  7. AZATHIOPRINE [Concomitant]
     Active Substance: AZATHIOPRINE
  8. PROPRANOLOL HYDROCHLORIDE [Concomitant]
     Active Substance: PROPRANOLOL HYDROCHLORIDE
  9. URSODIOL [Concomitant]
     Active Substance: URSODIOL
  10. RETINOL [Concomitant]
     Active Substance: RETINOL
  11. LATANOPROST [Concomitant]
     Active Substance: LATANOPROST
  12. FOLIC ACID [Concomitant]
     Active Substance: FOLIC ACID
  13. MIRENA [Concomitant]
     Active Substance: LEVONORGESTREL
     Dosage: 20?G/DAY
     Route: 015
  14. FUROSEMIDE [Concomitant]
     Active Substance: FUROSEMIDE
  15. VITAMIN D3 [Concomitant]
     Active Substance: CHOLECALCIFEROL
  16. TYVASO [Concomitant]
     Active Substance: TREPROSTINIL
  17. CRANBERRY [Concomitant]
     Active Substance: CRANBERRY

REACTIONS (9)
  - Liver disorder [Not Recovered/Not Resolved]
  - Pulmonary hypertension [Not Recovered/Not Resolved]
  - Epistaxis [Not Recovered/Not Resolved]
  - Head discomfort [Not Recovered/Not Resolved]
  - Coagulation time prolonged [None]
  - Increased tendency to bruise [None]
  - Dyspepsia [None]
  - Gastrooesophageal reflux disease [None]
  - Varicose vein [None]
